FAERS Safety Report 9944752 (Version 1)
Quarter: 2014Q1

REPORT INFORMATION
  Report Type: Spontaneous
  Country: US (occurrence: US)
  Receive Date: 20140303
  Receipt Date: 20140303
  Transmission Date: 20141002
  Serious: No
  Sender: FDA-Public Use
  Company Number: US-AMGEN-USASP2013072425

PATIENT
  Age: 77 Year
  Sex: Female
  Weight: 62.59 kg

DRUGS (5)
  1. ENBREL [Suspect]
     Indication: PRODUCT USED FOR UNKNOWN INDICATION
     Dosage: 50 MG/ML, 2 TIMES/WK 72-96 HOURS APART
     Route: 058
  2. LIPITOR [Concomitant]
     Dosage: 20 MG, UNK
  3. LISINOPRIL [Concomitant]
     Dosage: 2.5 MG, UNK
  4. POTASSIUM GLUCONATE [Concomitant]
     Dosage: 595 MG, ER
  5. MULTIVIT                           /07504101/ [Concomitant]
     Dosage: UNK

REACTIONS (1)
  - Breast pain [Unknown]
